FAERS Safety Report 21954473 (Version 1)
Quarter: 2023Q1

REPORT INFORMATION
  Report Type: Spontaneous
  Country: US (occurrence: US)
  Receive Date: 20230205
  Receipt Date: 20230205
  Transmission Date: 20230417
  Serious: No
  Sender: FDA-Public Use
  Company Number: US-SA-SAC20230131000062

PATIENT
  Age: 75 Year
  Sex: Female
  Weight: 54.422 kg

DRUGS (16)
  1. DUPIXENT [Suspect]
     Active Substance: DUPILUMAB
     Indication: Dermatitis atopic
     Dosage: 300 MG, QOW
     Route: 058
     Dates: start: 20221027
  2. CANNABIDIOL\HERBALS [Suspect]
     Active Substance: CANNABIDIOL\HERBALS
     Dosage: UNK
     Dates: end: 202301
  3. ACETAMINOPHEN\HYDROCODONE [Concomitant]
     Active Substance: ACETAMINOPHEN\HYDROCODONE
  4. CLOBETASOL PROPIONATE [Concomitant]
     Active Substance: CLOBETASOL PROPIONATE
  5. NITROFURANTOIN [Concomitant]
     Active Substance: NITROFURANTOIN
  6. ZOLPIDEM TARTRATE [Concomitant]
     Active Substance: ZOLPIDEM TARTRATE
  7. LEVOCETIRIZINE DIHYDROCHLORIDE [Concomitant]
     Active Substance: LEVOCETIRIZINE DIHYDROCHLORIDE
  8. FLUTICASONE PROPIONATE [Concomitant]
     Active Substance: FLUTICASONE PROPIONATE
  9. ETODOLAC [Concomitant]
     Active Substance: ETODOLAC
  10. VITAMIN D2 [Concomitant]
     Active Substance: ERGOCALCIFEROL
  11. DULOXETINE HYDROCHLORIDE [Concomitant]
     Active Substance: DULOXETINE HYDROCHLORIDE
     Dosage: UNK
  12. CYCLOBENZAPRINE HYDROCHLORIDE [Concomitant]
     Active Substance: CYCLOBENZAPRINE HYDROCHLORIDE
  13. COLESTIPOL HYDROCHLORIDE [Interacting]
     Active Substance: COLESTIPOL HYDROCHLORIDE
     Dosage: UNK
  14. ACETYLSALICYLIC ACID;BUTALBITAL;CAFFEINE [Concomitant]
  15. FLUCELVAX QUAD [Concomitant]
     Dosage: UNK
     Dates: start: 2022, end: 2023
  16. MODERNA COVID-19 VACCINE [Concomitant]
     Active Substance: ELASOMERAN
     Indication: Immunisation
     Dosage: UNK

REACTIONS (5)
  - Upper limb fracture [Not Recovered/Not Resolved]
  - Eczema [Recovering/Resolving]
  - Pruritus [Recovering/Resolving]
  - Skin exfoliation [Recovering/Resolving]
  - Skin swelling [Recovering/Resolving]

NARRATIVE: CASE EVENT DATE: 20221201
